FAERS Safety Report 15083923 (Version 3)
Quarter: 2018Q3

REPORT INFORMATION
  Report Type: Report from Study
  Country: US (occurrence: US)
  Receive Date: 20180628
  Receipt Date: 20180806
  Transmission Date: 20181010
  Serious: Yes (Other)
  Sender: FDA-Public Use
  Company Number: US-CLOVIS ONCOLOGY-CLO-2018-000568

PATIENT
  Age: 59 Year
  Sex: Female

DRUGS (1)
  1. RUBRACA [Suspect]
     Active Substance: RUCAPARIB CAMSYLATE
     Indication: OVARIAN CANCER
     Dosage: 600 MG, BID
     Route: 048
     Dates: start: 20180519

REACTIONS (12)
  - Weight decreased [Unknown]
  - Decreased appetite [Recovering/Resolving]
  - Blood glucose increased [Recovered/Resolved]
  - Platelet count decreased [Unknown]
  - Drug dose omission [Unknown]
  - Middle ear effusion [Recovered/Resolved]
  - Fatigue [Not Recovered/Not Resolved]
  - Blood magnesium decreased [Not Recovered/Not Resolved]
  - Blood phosphorus decreased [Recovering/Resolving]
  - Initial insomnia [Unknown]
  - Dizziness [Unknown]
  - Nausea [Unknown]

NARRATIVE: CASE EVENT DATE: 2018
